FAERS Safety Report 9384465 (Version 1)
Quarter: 2013Q2

REPORT INFORMATION
  Report Type: Spontaneous
  Country: IT (occurrence: None)
  Receive Date: 20130628
  Receipt Date: 20130628
  Transmission Date: 20140414
  Serious: Yes (Hospitalization)
  Sender: FDA-Public Use
  Company Number: AUR-APL-2013-05084

PATIENT
  Age: 30 Year
  Sex: Male
  Weight: 60 kg

DRUGS (2)
  1. AMOXICILLIN (AMOXICILLIN) [Suspect]
     Indication: ABSCESS
     Dosage: 2 DOSAGE FROMS, 1 D, ORAL
     Route: 048
     Dates: start: 20121001, end: 20121001
  2. ENTEROGERMINA (BACILLUS SUBTILIS) [Concomitant]

REACTIONS (1)
  - Dermatitis allergic [None]
